FAERS Safety Report 5655983-9 (Version None)
Quarter: 2008Q1

REPORT INFORMATION
  Report Type: 
  Country: None (occurrence: None)
  Receive Date: 20080307
  Receipt Date: 20080225
  Transmission Date: 20080703
  Serious: Yes (Disabling, Other)
  Sender: FDA-Public Use
  Company Number: US-PFIZER INC-2008018348

PATIENT
  Sex: Female

DRUGS (5)
  1. LYRICA [Suspect]
     Indication: NEUROPATHY PERIPHERAL
     Dosage: FREQ:EVERYDAY
  2. FUROSEMIDE [Concomitant]
  3. WARFARIN SODIUM [Concomitant]
  4. ENALAPRIL MALEATE [Concomitant]
  5. POTASSIUM CHLORIDE [Concomitant]

REACTIONS (3)
  - ATRIAL FIBRILLATION [None]
  - SOMNOLENCE [None]
  - WEIGHT INCREASED [None]
